FAERS Safety Report 13662638 (Version 1)
Quarter: 2017Q2

REPORT INFORMATION
  Report Type: Spontaneous
  Country: US (occurrence: US)
  Receive Date: 20170616
  Receipt Date: 20170616
  Transmission Date: 20170830
  Serious: Yes (Hospitalization)
  Sender: FDA-Public Use
  Company Number: None

PATIENT
  Age: 88 Year
  Sex: Male
  Weight: 71 kg

DRUGS (1)
  1. IMATINIB [Suspect]
     Active Substance: IMATINIB
     Indication: VASCULAR OPERATION
     Route: 048
     Dates: start: 20151123, end: 20170323

REACTIONS (3)
  - Pulmonary mass [None]
  - Pleural effusion [None]
  - Hepatic mass [None]

NARRATIVE: CASE EVENT DATE: 20170323
